FAERS Safety Report 7121234-1 (Version None)
Quarter: 2010Q4

REPORT INFORMATION
  Report Type: 
  Country: None (occurrence: None)
  Receive Date: 20101124
  Receipt Date: 20101117
  Transmission Date: 20110411
  Serious: Yes (Death, Hospitalization)
  Sender: FDA-Public Use
  Company Number: US-JNJFOC-20101102313

PATIENT
  Sex: Male
  Weight: 74.84 kg

DRUGS (1)
  1. LEVAQUIN [Suspect]
     Indication: ATELECTASIS
     Route: 048

REACTIONS (7)
  - DEATH [None]
  - FULL BLOOD COUNT ABNORMAL [None]
  - LIVER FUNCTION TEST ABNORMAL [None]
  - LIVER INJURY [None]
  - MULTI-ORGAN FAILURE [None]
  - SKIN DISCOLOURATION [None]
  - SPLENOMEGALY [None]
